FAERS Safety Report 22052829 (Version 1)
Quarter: 2023Q1

REPORT INFORMATION
  Report Type: Spontaneous
  Country: FR (occurrence: FR)
  Receive Date: 20230302
  Receipt Date: 20230302
  Transmission Date: 20230418
  Serious: Yes (Hospitalization, Other)
  Sender: FDA-Public Use
  Company Number: FR-VER-202300001

PATIENT
  Age: 75 Year
  Sex: Male
  Weight: 69 kg

DRUGS (1)
  1. TRIPTORELIN PAMOATE [Suspect]
     Active Substance: TRIPTORELIN PAMOATE
     Indication: Prostate cancer metastatic
     Route: 058
     Dates: start: 20221226

REACTIONS (4)
  - Disseminated intravascular coagulation [Recovering/Resolving]
  - Ischaemic stroke [Recovering/Resolving]
  - Myocarditis [Recovering/Resolving]
  - Nervous system disorder [Recovering/Resolving]
